FAERS Safety Report 5160336-6 (Version None)
Quarter: 2006Q4

REPORT INFORMATION
  Report Type: 
  Country: None (occurrence: None)
  Receive Date: 20061120
  Receipt Date: 20061102
  Transmission Date: 20070319
  Serious: Yes (Hospitalization)
  Sender: FDA-Public Use
  Company Number: US-2006-004205

PATIENT
  Age: 44 Year
  Sex: Female
  Weight: 89.3 kg

DRUGS (1)
  1. BETASERON [Suspect]
     Indication: RELAPSING-REMITTING MULTIPLE SCLEROSIS
     Dosage: 8 MIU, EVERY 2D, SUBCUTANEOUS
     Route: 058
     Dates: start: 20060106

REACTIONS (3)
  - CHOLECYSTECTOMY [None]
  - DYSPNOEA [None]
  - VAGINAL HAEMORRHAGE [None]
